FAERS Safety Report 8568467-5 (Version None)
Quarter: 2012Q3

REPORT INFORMATION
  Report Type: 
  Country: None (occurrence: None)
  Receive Date: 20120803
  Receipt Date: 20120201
  Transmission Date: 20120928
  Serious: No
  Sender: FDA-Public Use
  Company Number: US-ABBOTT-12P-163-0900621-00

PATIENT
  Sex: Female
  Weight: 88.53 kg

DRUGS (4)
  1. CRESTOR [Concomitant]
     Indication: PRODUCT USED FOR UNKNOWN INDICATION
  2. NIASPAN [Suspect]
     Indication: ILL-DEFINED DISORDER
     Dates: start: 20100101
  3. PLAVIX [Concomitant]
     Indication: PRODUCT USED FOR UNKNOWN INDICATION
  4. NIASPAN [Suspect]

REACTIONS (4)
  - MUSCULOSKELETAL PAIN [None]
  - ARTHROPATHY [None]
  - MOVEMENT DISORDER [None]
  - ARTHRALGIA [None]
